FAERS Safety Report 9374451 (Version 1)
Quarter: 2013Q2

REPORT INFORMATION
  Report Type: Spontaneous
  Country: GB (occurrence: GB)
  Receive Date: 20130628
  Receipt Date: 20130628
  Transmission Date: 20140414
  Serious: Yes (Other)
  Sender: FDA-Public Use
  Company Number: GB-AMGEN-GBRSP2013045133

PATIENT
  Age: 61 Year
  Sex: Female

DRUGS (1)
  1. PROLIA [Suspect]
     Indication: SPINAL FRACTURE
     Dosage: 60 MG, Q6MO
     Route: 058

REACTIONS (1)
  - Macular fibrosis [Not Recovered/Not Resolved]
